FAERS Safety Report 9947472 (Version 2)
Quarter: 2014Q1

REPORT INFORMATION
  Report Type: Report from Study
  Country: PR (occurrence: PR)
  Receive Date: 20140303
  Receipt Date: 20140303
  Transmission Date: 20141002
  Serious: No
  Sender: FDA-Public Use
  Company Number: PR-ABBVIE-12P-131-0910394-00

PATIENT
  Sex: Female
  Weight: 62.65 kg

DRUGS (9)
  1. HUMIRA 40 MG/0.8 ML PEN [Suspect]
     Indication: RHEUMATOID ARTHRITIS
     Route: 058
     Dates: start: 2011
  2. HUMIRA 40 MG/0.8 ML PEN [Suspect]
     Route: 058
     Dates: start: 20130131
  3. DICLOFENAC POTASSIUM [Concomitant]
     Indication: PAIN
     Route: 048
  4. DICLOFENAC POTASSIUM [Concomitant]
     Indication: RHEUMATOID ARTHRITIS
  5. ADVIL [Concomitant]
     Indication: PRODUCT USED FOR UNKNOWN INDICATION
     Route: 048
  6. GABAPENTIN [Concomitant]
     Indication: PRODUCT USED FOR UNKNOWN INDICATION
     Route: 048
  7. PATCH [Concomitant]
     Indication: BACK PAIN
     Route: 061
  8. NORFLEX [Concomitant]
     Indication: BACK PAIN
     Route: 048
  9. UNKNOWN MEDICATION ANTI-INFLAMMATORY [Concomitant]
     Indication: MUSCLE SPASMS
     Route: 048

REACTIONS (3)
  - Constipation [Recovered/Resolved]
  - Fall [Unknown]
  - Pain [Unknown]
